FAERS Safety Report 19987419 (Version 2)
Quarter: 2022Q1

REPORT INFORMATION
  Report Type: Spontaneous
  Country: US (occurrence: US)
  Receive Date: 20211022
  Receipt Date: 20220128
  Transmission Date: 20220424
  Serious: No
  Sender: FDA-Public Use
  Company Number: US-ENDO PHARMACEUTICALS INC-2021-011617

PATIENT
  Sex: Female

DRUGS (3)
  1. QWO [Suspect]
     Active Substance: COLLAGENASE CLOSTRIDIUM HISTOLYTICUM-AAES
     Indication: Cellulite
     Dosage: 4 ML VIAL, TREATMENT 1
     Route: 065
     Dates: start: 2021
  2. QWO [Suspect]
     Active Substance: COLLAGENASE CLOSTRIDIUM HISTOLYTICUM-AAES
     Dosage: 4 ML VIAL, TREATMENT 2, (21 DAYS APART FROM THE LAST INJECTION)
     Route: 065
     Dates: start: 2021
  3. QWO [Suspect]
     Active Substance: COLLAGENASE CLOSTRIDIUM HISTOLYTICUM-AAES
     Dosage: 4 ML VIAL, TREATMENT 3, (21 DAYS APART FROM THE LAST INJECTION)
     Route: 065
     Dates: start: 20210831

REACTIONS (5)
  - Contusion [Recovered/Resolved]
  - Pain [Recovered/Resolved]
  - Nodule [Recovered/Resolved]
  - Skin discolouration [Not Recovered/Not Resolved]
  - Drug ineffective [Unknown]

NARRATIVE: CASE EVENT DATE: 20210101
